FAERS Safety Report 4334159-1 (Version None)
Quarter: 2004Q2

REPORT INFORMATION
  Report Type: 
  Country: None (occurrence: None)
  Receive Date: 20040402
  Receipt Date: 20040324
  Transmission Date: 20050107
  Serious: Yes (Death)
  Sender: FDA-Public Use
  Company Number: 2004-03-1686

PATIENT
  Age: 65 Year
  Sex: Male
  Weight: 63 kg

DRUGS (12)
  1. REBETOL [Suspect]
     Indication: HEPATITIS C
     Dosage: 800 MG ORAL
     Route: 048
     Dates: start: 20040309, end: 20040321
  2. INTRON A [Suspect]
     Indication: HEPATITIS C
     Dosage: 10 MU INTRAMUSCULAR
     Route: 030
     Dates: start: 20040309, end: 20040321
  3. ALEVIATIN TABLETS [Concomitant]
  4. DEPAKENE TABLETS [Concomitant]
  5. VOLTAREN [Concomitant]
  6. ZYRTEC [Concomitant]
  7. ZESULAN [Concomitant]
  8. EPINASTINE HCL [Concomitant]
  9. CELESTAMINE TAB [Concomitant]
  10. MOMETASONE FUROATE CREAM [Concomitant]
  11. EURAX-HYDROCORTISONE [Concomitant]
  12. RINDERON-VG [Concomitant]

REACTIONS (6)
  - HAEMOGLOBIN DECREASED [None]
  - PLATELET COUNT DECREASED [None]
  - RENAL FAILURE [None]
  - RHABDOMYOLYSIS [None]
  - URINARY TRACT INFECTION [None]
  - WHITE BLOOD CELL COUNT DECREASED [None]
